FAERS Safety Report 13596586 (Version 2)
Quarter: 2017Q2

REPORT INFORMATION
  Report Type: Report from Study
  Country: AU (occurrence: AU)
  Receive Date: 20170531
  Receipt Date: 20170621
  Transmission Date: 20170830
  Serious: Yes (Other)
  Sender: FDA-Public Use
  Company Number: AU-ROCHE-1942122

PATIENT
  Age: 74 Year
  Sex: Female

DRUGS (3)
  1. ARGININE [Concomitant]
     Active Substance: ARGININE
     Indication: ANGINA PECTORIS
     Dosage: PRN
     Route: 048
     Dates: start: 201111
  2. ATENOLOL. [Concomitant]
     Active Substance: ATENOLOL
     Indication: ANGINA PECTORIS
     Dosage: 50 MG, UNK
     Route: 048
     Dates: start: 201402
  3. RANIBIZUMAB [Suspect]
     Active Substance: RANIBIZUMAB
     Indication: NEOVASCULAR AGE-RELATED MACULAR DEGENERATION
     Route: 031
     Dates: start: 20140826, end: 20140826

REACTIONS (1)
  - Abdominal pain upper [Recovered/Resolved]

NARRATIVE: CASE EVENT DATE: 20140923
